FAERS Safety Report 11822027 (Version 4)
Quarter: 2016Q3

REPORT INFORMATION
  Report Type: Spontaneous
  Country: US (occurrence: US)
  Receive Date: 20151210
  Receipt Date: 20160725
  Transmission Date: 20161109
  Serious: No
  Sender: FDA-Public Use
  Company Number: US-JNJFOC-20150804279

PATIENT
  Age: 82 Year
  Sex: Male

DRUGS (2)
  1. IMBRUVICA [Suspect]
     Active Substance: IBRUTINIB
     Indication: CHRONIC LYMPHOCYTIC LEUKAEMIA
     Route: 048
     Dates: start: 20140405
  2. RITUXAN [Concomitant]
     Active Substance: RITUXIMAB
     Indication: CHRONIC LYMPHOCYTIC LEUKAEMIA
     Dates: start: 201404

REACTIONS (10)
  - Onychoclasis [Not Recovered/Not Resolved]
  - Productive cough [Recovering/Resolving]
  - Arthritis [Unknown]
  - Eyelid margin crusting [Unknown]
  - Paraesthesia [Unknown]
  - Dry skin [Unknown]
  - Adverse event [Unknown]
  - Allergy to arthropod bite [Not Recovered/Not Resolved]
  - Cough [Recovering/Resolving]
  - Ear infection [Unknown]

NARRATIVE: CASE EVENT DATE: 20150501
